FAERS Safety Report 7145364-3 (Version None)
Quarter: 2010Q4

REPORT INFORMATION
  Report Type: 
  Country: None (occurrence: None)
  Receive Date: 20101208
  Receipt Date: 20101124
  Transmission Date: 20110411
  Serious: Yes (Hospitalization, Disabling)
  Sender: FDA-Public Use
  Company Number: US-ROCHE-567104

PATIENT
  Sex: Female
  Weight: 62.6 kg

DRUGS (5)
  1. BONIVA [Suspect]
     Indication: OSTEOPENIA
     Dosage: RECEIVED ONLY ONE DOSE; FORM: PILL
     Route: 048
     Dates: start: 20080128, end: 20080301
  2. CELEBREX [Suspect]
     Indication: PAIN
     Route: 065
  3. VICODIN [Suspect]
     Indication: PAIN
     Route: 065
  4. TYLENOL-500 [Concomitant]
     Indication: OSTEOARTHRITIS
     Dosage: TAKEN INFREQUENTLY
  5. ADVIL [Concomitant]
     Indication: OSTEOARTHRITIS
     Dosage: TAKEN INFREQUENTLY

REACTIONS (11)
  - ARTHRITIS [None]
  - ARTHROPATHY [None]
  - BONE PAIN [None]
  - DEPRESSION [None]
  - DYSPEPSIA [None]
  - GASTRIC DISORDER [None]
  - INFLUENZA LIKE ILLNESS [None]
  - MUSCLE TWITCHING [None]
  - NAUSEA [None]
  - OSTEOARTHRITIS [None]
  - VOMITING [None]
